FAERS Safety Report 8453604-3 (Version None)
Quarter: 2012Q2

REPORT INFORMATION
  Report Type: 
  Country: None (occurrence: None)
  Receive Date: 20120620
  Receipt Date: 20120613
  Transmission Date: 20120825
  Serious: Yes (Hospitalization)
  Sender: FDA-Public Use
  Company Number: SE-MERCK-1206USA02613

PATIENT
  Age: 70 Year
  Sex: Female

DRUGS (15)
  1. COZAAR [Suspect]
     Route: 048
  2. WARFARIN SODIUM [Concomitant]
     Route: 065
  3. FUROSEMIDE [Suspect]
     Indication: ESSENTIAL HYPERTENSION
     Route: 065
     Dates: end: 20120418
  4. NEORECORMON [Concomitant]
     Route: 065
  5. SIMVASTATIN [Concomitant]
     Route: 065
  6. NOVO-NORM [Concomitant]
     Route: 065
  7. DOXAZOSIN MESYLATE [Concomitant]
     Route: 065
  8. BISOPROLOL [Concomitant]
     Route: 065
  9. FELODIPINE [Concomitant]
     Route: 065
  10. SODIUM BICARBONATE [Concomitant]
     Route: 065
  11. COZAAR [Suspect]
     Indication: ESSENTIAL HYPERTENSION
     Route: 048
  12. FOLIC ACID [Concomitant]
     Route: 065
  13. OMEPRAZOLE [Concomitant]
     Route: 065
  14. ETALPHA [Concomitant]
     Route: 065
  15. HYDROXOCOBALAMIN [Concomitant]
     Route: 065

REACTIONS (1)
  - DEHYDRATION [None]
